FAERS Safety Report 20998213 (Version 1)
Quarter: 2022Q2

REPORT INFORMATION
  Report Type: Spontaneous
  Country: US (occurrence: None)
  Receive Date: 20220622
  Receipt Date: 20220622
  Transmission Date: 20220721
  Serious: Yes (Other)
  Sender: FDA-Public Use
  Company Number: None

PATIENT
  Sex: 0

DRUGS (2)
  1. PRED MILD [Suspect]
     Active Substance: PREDNISOLONE ACETATE
  2. LOTEMAX [Suspect]
     Active Substance: LOTEPREDNOL ETABONATE

REACTIONS (1)
  - Drug ineffective [None]
